FAERS Safety Report 18610137 (Version 1)
Quarter: 2020Q4

REPORT INFORMATION
  Report Type: Report from Study
  Country: IL (occurrence: IL)
  Receive Date: 20201214
  Receipt Date: 20201214
  Transmission Date: 20210114
  Serious: Yes (Other)
  Sender: FDA-Public Use
  Company Number: NVSC2020IL219804

PATIENT
  Sex: Male

DRUGS (2)
  1. KISQALI [Suspect]
     Active Substance: RIBOCICLIB
     Indication: BREAST CANCER
     Dosage: 600 MG, QD
     Route: 048
     Dates: start: 20200707
  2. KISQALI [Suspect]
     Active Substance: RIBOCICLIB
     Dosage: 400 MG, QD
     Route: 048

REACTIONS (7)
  - Asthenia [Not Recovered/Not Resolved]
  - Breast cancer [Unknown]
  - Product use issue [Unknown]
  - Treatment failure [Unknown]
  - Stomatitis [Recovered/Resolved]
  - Nausea [Recovering/Resolving]
  - Malignant neoplasm progression [Unknown]
